FAERS Safety Report 6092778-9 (Version None)
Quarter: 2009Q1

REPORT INFORMATION
  Report Type: 
  Country: None (occurrence: None)
  Receive Date: 20090225
  Receipt Date: 20090210
  Transmission Date: 20090719
  Serious: Yes (Death, Hospitalization, Other)
  Sender: FDA-Public Use
  Company Number: US-BAXTER-2008BH001411

PATIENT
  Age: 65 Year
  Sex: Female
  Weight: 67 kg

DRUGS (42)
  1. HEPARIN SODIUM INJECTION [Suspect]
     Indication: THROMBOSIS PROPHYLAXIS
     Route: 010
     Dates: start: 20071001, end: 20071201
  2. HEPARIN SODIUM INJECTION [Suspect]
     Route: 042
     Dates: start: 20071217, end: 20071217
  3. HEPARIN SODIUM INJECTION [Suspect]
     Route: 042
     Dates: start: 20071119, end: 20071119
  4. HEPARIN SODIUM INJECTION [Suspect]
     Route: 042
     Dates: start: 20071217, end: 20071217
  5. HEPARIN SODIUM INJECTION [Suspect]
     Route: 042
     Dates: start: 20071119, end: 20071119
  6. LABETALOL HYDROCHLORIDE [Concomitant]
     Indication: DRUG USE FOR UNKNOWN INDICATION
     Route: 048
     Dates: start: 20071029
  7. VENTOLIN [Concomitant]
     Indication: DRUG USE FOR UNKNOWN INDICATION
     Route: 055
  8. PREDNISONE [Concomitant]
     Indication: DRUG USE FOR UNKNOWN INDICATION
     Route: 048
     Dates: start: 20071015
  9. CLONIDINE [Concomitant]
     Indication: DRUG USE FOR UNKNOWN INDICATION
     Route: 048
     Dates: start: 20071029
  10. LISINOPRIL [Concomitant]
     Indication: DRUG USE FOR UNKNOWN INDICATION
     Route: 048
     Dates: start: 20071029
  11. NORVASC [Concomitant]
     Indication: DRUG USE FOR UNKNOWN INDICATION
     Route: 048
     Dates: start: 20071029
  12. XANAX [Concomitant]
     Indication: ANXIETY
     Route: 048
     Dates: start: 20071029
  13. VENOFER [Concomitant]
     Indication: DRUG USE FOR UNKNOWN INDICATION
     Route: 042
  14. ZOFRAN [Concomitant]
     Indication: NAUSEA
     Route: 048
     Dates: start: 20071029
  15. FLOVENT [Concomitant]
     Indication: DRUG USE FOR UNKNOWN INDICATION
     Route: 055
     Dates: start: 20071029
  16. MEPHYTON [Concomitant]
     Indication: DRUG USE FOR UNKNOWN INDICATION
     Route: 048
     Dates: start: 20071029
  17. ZEMPLAR [Concomitant]
     Indication: DRUG USE FOR UNKNOWN INDICATION
     Route: 042
     Dates: start: 20071108
  18. FOLBEE PLUS [Concomitant]
     Indication: DRUG USE FOR UNKNOWN INDICATION
     Route: 065
     Dates: start: 20071019
  19. PERCOCET [Concomitant]
     Indication: PAIN
     Route: 048
     Dates: start: 20071019
  20. NOVOLOG [Concomitant]
     Indication: DRUG USE FOR UNKNOWN INDICATION
     Route: 065
     Dates: start: 20071017
  21. CELEXA [Concomitant]
     Indication: DRUG USE FOR UNKNOWN INDICATION
     Route: 048
     Dates: start: 20071015
  22. PRILOSEC [Concomitant]
     Indication: DRUG USE FOR UNKNOWN INDICATION
     Route: 048
     Dates: start: 20071015
  23. RENAGEL [Concomitant]
     Indication: DRUG USE FOR UNKNOWN INDICATION
     Route: 048
     Dates: start: 20071015
  24. EPOGEN [Concomitant]
     Indication: DRUG USE FOR UNKNOWN INDICATION
     Route: 042
     Dates: start: 20071108
  25. ALBUTEROL [Concomitant]
     Indication: DRUG USE FOR UNKNOWN INDICATION
     Route: 055
     Dates: start: 20071015
  26. CORDARONE [Concomitant]
     Indication: CORONARY ARTERY DISEASE
     Route: 048
  27. ATACAND [Concomitant]
     Indication: HYPERTENSION
     Route: 048
  28. CATAPRES                                /UNK/ [Concomitant]
     Indication: HYPERTENSION
     Route: 048
  29. SENNAKOT [Concomitant]
     Indication: CONSTIPATION
     Route: 048
  30. HEMORRHOIDAL HC [Concomitant]
     Indication: HAEMORRHOIDS
     Route: 054
  31. NOVOLIN [Concomitant]
     Indication: DRUG USE FOR UNKNOWN INDICATION
     Route: 058
  32. LEVAQUIN [Concomitant]
     Indication: PROPHYLAXIS
     Route: 048
  33. PRINIVIL [Concomitant]
     Indication: CORONARY ARTERY DISEASE
     Route: 048
  34. MEGACE [Concomitant]
     Indication: DECREASED APPETITE
     Route: 048
  35. LOPRESSOR [Concomitant]
     Indication: HYPERTENSION
     Route: 048
  36. REGLAN [Concomitant]
     Indication: DIABETIC GASTROPARESIS
     Route: 048
  37. FLAGYL [Concomitant]
     Indication: PROPHYLAXIS
     Route: 048
  38. PRILOSEC [Concomitant]
     Indication: GASTROOESOPHAGEAL REFLUX DISEASE
     Route: 048
  39. SPIRIVA [Concomitant]
     Indication: CHRONIC OBSTRUCTIVE PULMONARY DISEASE
     Route: 055
  40. MEDROL [Concomitant]
     Indication: CHRONIC OBSTRUCTIVE PULMONARY DISEASE
     Route: 065
  41. BENADRYL [Concomitant]
     Indication: PRURITUS
     Route: 048
  42. CITRACAL [Concomitant]
     Indication: CONSTIPATION
     Route: 048

REACTIONS (26)
  - ABDOMINAL PAIN [None]
  - ANOREXIA [None]
  - ANXIETY [None]
  - ASTHENIA [None]
  - CATHETER RELATED INFECTION [None]
  - CHEST PAIN [None]
  - DIARRHOEA [None]
  - DIZZINESS [None]
  - DYSPNOEA [None]
  - ENDOCARDITIS [None]
  - FATIGUE [None]
  - GENERAL PHYSICAL HEALTH DETERIORATION [None]
  - HAEMORRHOIDS [None]
  - LETHARGY [None]
  - MALAISE [None]
  - NAUSEA [None]
  - OEDEMA [None]
  - PLEURAL EFFUSION [None]
  - PULMONARY EMBOLISM [None]
  - PYREXIA [None]
  - RENAL FAILURE CHRONIC [None]
  - RESPIRATORY FAILURE [None]
  - SEPSIS [None]
  - SKIN DISCOLOURATION [None]
  - VENTRICULAR FIBRILLATION [None]
  - VOMITING [None]
